FAERS Safety Report 11851683 (Version 4)
Quarter: 2016Q1

REPORT INFORMATION
  Report Type: Report from Study
  Country: ES (occurrence: ES)
  Receive Date: 20151218
  Receipt Date: 20160219
  Transmission Date: 20160526
  Serious: Yes (Hospitalization, Other)
  Sender: FDA-Public Use
  Company Number: ES-ABBVIE-15P-144-1517719-00

PATIENT
  Age: 72 Year
  Sex: Female

DRUGS (1)
  1. DUODOPA [Suspect]
     Active Substance: CARBIDOPA\LEVODOPA
     Indication: PARKINSON^S DISEASE
     Route: 050
     Dates: start: 20121203

REACTIONS (9)
  - Urinary tract infection [Unknown]
  - Anaemia [Unknown]
  - Hypotonia [Unknown]
  - Stoma site extravasation [Not Recovered/Not Resolved]
  - Dyskinesia [Unknown]
  - Sepsis [Unknown]
  - Stoma site infection [Unknown]
  - Stoma site infection [Not Recovered/Not Resolved]
  - Catheter site dermatitis [Recovering/Resolving]

NARRATIVE: CASE EVENT DATE: 201512
